FAERS Safety Report 16785061 (Version 1)
Quarter: 2019Q3

REPORT INFORMATION
  Report Type: Spontaneous
  Country: US (occurrence: US)
  Receive Date: 20190909
  Receipt Date: 20190909
  Transmission Date: 20191005
  Serious: No
  Sender: FDA-Public Use
  Company Number: US-ALLERGAN-1924421US

PATIENT
  Sex: Female
  Weight: 63.49 kg

DRUGS (3)
  1. DILTIAZEM XR [Concomitant]
     Active Substance: DILTIAZEM
     Indication: HYPERTENSION
     Dosage: UNK, QD
  2. VANIQA [Suspect]
     Active Substance: EFLORNITHINE HYDROCHLORIDE
     Dosage: UNK, BID
     Route: 061
     Dates: start: 201903
  3. VANIQA [Suspect]
     Active Substance: EFLORNITHINE HYDROCHLORIDE
     Indication: DEPILATION
     Dosage: UNK, QD
     Route: 061
     Dates: end: 201905

REACTIONS (3)
  - Inappropriate schedule of product administration [Unknown]
  - Rash pruritic [Recovering/Resolving]
  - Exfoliative rash [Recovering/Resolving]

NARRATIVE: CASE EVENT DATE: 2019
